FAERS Safety Report 4638248-3 (Version None)
Quarter: 2005Q2

REPORT INFORMATION
  Report Type: 
  Country: None (occurrence: None)
  Receive Date: 20050415
  Receipt Date: 20050324
  Transmission Date: 20051028
  Serious: Yes (Death)
  Sender: FDA-Public Use
  Company Number: USA050290204

PATIENT
  Age: 11 Year
  Sex: Male
  Weight: 58 kg

DRUGS (3)
  1. STRATTERA [Suspect]
     Indication: ATTENTION DEFICIT/HYPERACTIVITY DISORDER
     Dosage: 40 MG
  2. WELLBUTRIN SR [Concomitant]
  3. ADDERALL 10 [Concomitant]

REACTIONS (4)
  - CARDIO-RESPIRATORY ARREST [None]
  - FATIGUE [None]
  - MEDICATION ERROR [None]
  - SUICIDAL IDEATION [None]
